FAERS Safety Report 13124345 (Version 3)
Quarter: 2017Q1

REPORT INFORMATION
  Report Type: Report from Study
  Country: None (occurrence: CA)
  Receive Date: 20170118
  Receipt Date: 20170222
  Transmission Date: 20170428
  Serious: Yes (Life-Threatening, Other)
  Sender: FDA-Public Use
  Company Number: CA-ABBVIE-17K-028-1839509-00

PATIENT
  Age: 46 Year
  Sex: Male
  Weight: 78.5 kg

DRUGS (1)
  1. HUMIRA [Suspect]
     Active Substance: ADALIMUMAB
     Indication: CROHN^S DISEASE
     Route: 058
     Dates: start: 20161028, end: 20170111

REACTIONS (3)
  - Metastatic carcinoma of the bladder [Unknown]
  - Haematuria [Unknown]
  - Testicular pain [Unknown]

NARRATIVE: CASE EVENT DATE: 201611
